FAERS Safety Report 21681110 (Version 1)
Quarter: 2022Q4

REPORT INFORMATION
  Report Type: Spontaneous
  Country: US (occurrence: US)
  Receive Date: 20221205
  Receipt Date: 20221205
  Transmission Date: 20230112
  Serious: No
  Sender: FDA-Public Use
  Company Number: US-COSETTE-CP2022US000309

PATIENT
  Age: 76 Year
  Sex: Female

DRUGS (2)
  1. BENICAR [Suspect]
     Active Substance: OLMESARTAN MEDOXOMIL
     Indication: Blood pressure measurement
     Route: 065
     Dates: start: 202008
  2. BENICAR [Suspect]
     Active Substance: OLMESARTAN MEDOXOMIL
     Dosage: DOSE INCREASED
     Route: 065
     Dates: start: 20200821

REACTIONS (4)
  - Balance disorder [Unknown]
  - Pollakiuria [Unknown]
  - Impaired quality of life [Unknown]
  - Dizziness [Unknown]

NARRATIVE: CASE EVENT DATE: 20210501
